FAERS Safety Report 16822786 (Version 1)
Quarter: 2019Q3

REPORT INFORMATION
  Report Type: Spontaneous
  Country: FR (occurrence: FR)
  Receive Date: 20190918
  Receipt Date: 20190918
  Transmission Date: 20191005
  Serious: Yes (Hospitalization)
  Sender: FDA-Public Use
  Company Number: FR-PFIZER INC-2019401379

PATIENT
  Age: 101 Year
  Sex: Female
  Weight: 54 kg

DRUGS (9)
  1. VALPROMIDE [Concomitant]
     Active Substance: VALPROMIDE
     Dosage: UNK
     Route: 065
  2. PARACETAMOL [Concomitant]
     Active Substance: ACETAMINOPHEN
     Dosage: UNK
     Route: 065
  3. DEXPANTHENOL. [Concomitant]
     Active Substance: DEXPANTHENOL
     Dosage: UNK
     Route: 065
  4. ESCITALOPRAM OXALATE. [Suspect]
     Active Substance: ESCITALOPRAM OXALATE
     Indication: DEPRESSION
     Dosage: 10 MG, QD
     Route: 048
  5. DIOSMECTITE [Concomitant]
     Active Substance: MONTMORILLONITE
     Dosage: UNK
     Route: 065
  6. RAMIPRIL. [Suspect]
     Active Substance: RAMIPRIL
     Indication: HYPERTENSION
     Dosage: 5 MG, QD
     Route: 048
     Dates: end: 20190818
  7. ECONAZOLE. [Concomitant]
     Active Substance: ECONAZOLE NITRATE
     Dosage: UNK
     Route: 065
  8. LEVETIRACETAM. [Concomitant]
     Active Substance: LEVETIRACETAM
     Dosage: UNK
     Route: 065
  9. CALCIFEROL [ERGOCALCIFEROL] [Concomitant]
     Active Substance: ERGOCALCIFEROL
     Dosage: UNK

REACTIONS (2)
  - Fall [Recovering/Resolving]
  - Orthostatic hypotension [Recovering/Resolving]

NARRATIVE: CASE EVENT DATE: 20190816
